FAERS Safety Report 6716183-4 (Version None)
Quarter: 2010Q2

REPORT INFORMATION
  Report Type: 
  Country: None (occurrence: None)
  Receive Date: 20100507
  Receipt Date: 20100429
  Transmission Date: 20101027
  Serious: Yes (Other)
  Sender: FDA-Public Use
  Company Number: JP-PFIZER INC-2010056933

PATIENT
  Age: 75 Year
  Sex: Male

DRUGS (4)
  1. ADRIAMYCIN PFS [Suspect]
     Indication: LYMPHOMA
  2. ENDOXAN [Suspect]
     Indication: LYMPHOMA
     Dosage: UNK
  3. ONCOVIN [Suspect]
     Indication: LYMPHOMA
     Dosage: UNK
  4. PREDNISOLONE [Suspect]
     Indication: LYMPHOMA
     Dosage: UNK

REACTIONS (1)
  - HEPATITIS B [None]
